FAERS Safety Report 6285092-X (Version None)
Quarter: 2009Q3

REPORT INFORMATION
  Report Type: 
  Country: None (occurrence: None)
  Receive Date: 20090727
  Receipt Date: 20090722
  Transmission Date: 20100115
  Serious: Yes (Hospitalization)
  Sender: FDA-Public Use
  Company Number: US-MERCK-0907USA03627

PATIENT
  Sex: Male

DRUGS (1)
  1. COSOPT [Suspect]
     Route: 047

REACTIONS (1)
  - ADVERSE EVENT [None]
